FAERS Safety Report 6301974-4 (Version None)
Quarter: 2009Q3

REPORT INFORMATION
  Report Type: 
  Country: None (occurrence: None)
  Receive Date: 20090807
  Receipt Date: 20090804
  Transmission Date: 20100115
  Serious: Yes (Life-Threatening, Hospitalization, Other)
  Sender: FDA-Public Use
  Company Number: PHHY2008JP24190

PATIENT
  Sex: Male
  Weight: 28 kg

DRUGS (12)
  1. SANDIMMUNE [Suspect]
     Indication: COLITIS ULCERATIVE
     Dosage: 50 MG/D
     Dates: start: 20080507, end: 20080512
  2. IMURAN [Suspect]
     Indication: COLITIS ULCERATIVE
     Dosage: 25 MG/DAY
     Route: 048
     Dates: start: 20080424, end: 20080513
  3. PREDONINE [Suspect]
     Indication: COLITIS ULCERATIVE
     Dosage: 60 MG/DAY
     Route: 042
     Dates: start: 20080401, end: 20080101
  4. GASTER [Concomitant]
     Dosage: 10 MG PER DAY
     Route: 042
     Dates: start: 20080401, end: 20080513
  5. FESIN [Concomitant]
     Dosage: 20 MG PER DAY
     Route: 041
     Dates: start: 20080410, end: 20080513
  6. CEFMETAZON [Concomitant]
     Dosage: 2 G PER DAY
     Route: 042
     Dates: start: 20080508, end: 20080514
  7. PENTASA [Concomitant]
     Indication: COLITIS ULCERATIVE
     Dosage: 750 MG/D
     Route: 048
     Dates: start: 20080402, end: 20080513
  8. METHYLPREDNISOLONE [Concomitant]
     Indication: COLITIS ULCERATIVE
  9. PARA AMINOSALICYLIC ACID [Concomitant]
     Indication: COLITIS ULCERATIVE
     Dosage: UNK
  10. TPN [Concomitant]
  11. NON-DRUG: LEUKAPHERESIS [Concomitant]
  12. DIALYSIS [Concomitant]

REACTIONS (24)
  - ABDOMINAL PAIN [None]
  - ABDOMINAL PAIN UPPER [None]
  - COLOSTOMY [None]
  - CONTINUOUS HAEMODIAFILTRATION [None]
  - CONVULSION [None]
  - DIALYSIS DEVICE COMPLICATION [None]
  - DISSEMINATED INTRAVASCULAR COAGULATION [None]
  - HAEMATOCHEZIA [None]
  - HEPATITIS [None]
  - HYPERTENSION [None]
  - ILEOSTOMY [None]
  - INFLAMMATION [None]
  - INTESTINAL RESECTION [None]
  - MELAENA [None]
  - PANCREATIC DISORDER [None]
  - PANCREATITIS ACUTE [None]
  - PELVIC POUCH PROCEDURE [None]
  - PERIPANCREATIC FLUID COLLECTION [None]
  - PERITONEAL ADHESIONS [None]
  - PROCTOCOLECTOMY [None]
  - PYREXIA [None]
  - REVERSIBLE POSTERIOR LEUKOENCEPHALOPATHY SYNDROME [None]
  - VISUAL IMPAIRMENT [None]
  - VOMITING [None]
